FAERS Safety Report 15111952 (Version 7)
Quarter: 2019Q1

REPORT INFORMATION
  Report Type: Spontaneous
  Country: BG (occurrence: BG)
  Receive Date: 20180705
  Receipt Date: 20190129
  Transmission Date: 20190417
  Serious: Yes (Other)
  Sender: FDA-Public Use
  Company Number: BG-MYLANLABS-2018M1047176

PATIENT
  Age: 50 Year
  Sex: Male

DRUGS (10)
  1. LUTETIUM (177LU) OXODOTREOTIDE [Suspect]
     Active Substance: LUTETIUM OXODOTREOTIDE LU-177
     Indication: PROSTATE CANCER
     Dosage: 4 APPLICATIONS;  BEGIN THERAPY WHEN IT IS UNDERSTOOD THAT THERE ARE METASTASES IN SOFT TISSUES
     Route: 065
  2. XGEVA [Suspect]
     Active Substance: DENOSUMAB
     Indication: PROSTATE CANCER
     Dosage: UNK
     Route: 065
     Dates: start: 20141029
  3. BICALUTAMIDE. [Suspect]
     Active Substance: BICALUTAMIDE
     Indication: PROSTATE CANCER
     Dosage: UNK
     Route: 065
     Dates: start: 20141029
  4. LEUPRORELIN [Suspect]
     Active Substance: LEUPROLIDE ACETATE
     Indication: PROSTATE CANCER METASTATIC
     Dosage: UNK
     Route: 065
     Dates: start: 20141029
  5. DOCETAXEL. [Suspect]
     Active Substance: DOCETAXEL
     Indication: PROSTATE CANCER
     Dosage: 5 COURSES;  BECAUSE OF THE RISE IN PSA, CHEMOTHERAPY HAS BEGUN
     Route: 065
  6. CABAZITAXEL [Suspect]
     Active Substance: CABAZITAXEL
     Indication: PROSTATE CANCER
     Dosage: 12 COURSES
     Route: 065
     Dates: start: 20160519, end: 20170126
  7. CABAZITAXEL [Suspect]
     Active Substance: CABAZITAXEL
     Dosage: UNK
  8. LEUPRORELIN [Suspect]
     Active Substance: LEUPROLIDE ACETATE
     Indication: PROSTATE CANCER
  9. ABIRATERONE. [Suspect]
     Active Substance: ABIRATERONE ACETATE
     Indication: PROSTATE CANCER
     Dosage: 1000 MG, QD
     Route: 048
     Dates: start: 201705
  10. RADIUM RA 223 DICHLORIDE [Suspect]
     Active Substance: RADIUM RA-223 DICHLORIDE
     Indication: PROSTATE CANCER
     Dosage: UNK
     Route: 042
     Dates: start: 20170418, end: 20170712

REACTIONS (6)
  - Malignant neoplasm progression [Unknown]
  - Prostate cancer recurrent [Unknown]
  - Prostatic specific antigen increased [Unknown]
  - Prostate cancer [Unknown]
  - Drug ineffective [Unknown]
  - Drug resistance [Unknown]
